FAERS Safety Report 26188285 (Version 2)
Quarter: 2025Q4

REPORT INFORMATION
  Report Type: Spontaneous
  Country: US (occurrence: US)
  Receive Date: 20251222
  Receipt Date: 20251222
  Transmission Date: 20260118
  Serious: No
  Sender: BRISTOL-MYERS SQUIBB COMPANY
  Company Number: US-BRISTOL-MYERS SQUIBB COMPANY-2025-171235

PATIENT
  Age: 28 Year
  Sex: Female

DRUGS (1)
  1. ZEPOSIA [Suspect]
     Active Substance: OZANIMOD HYDROCHLORIDE
     Indication: Multiple sclerosis
     Route: 048
     Dates: start: 202307

REACTIONS (6)
  - Feeling of despair [Unknown]
  - Decreased interest [Unknown]
  - Depression [Unknown]
  - Weight increased [Unknown]
  - Apathy [Unknown]
  - Exercise lack of [Unknown]

NARRATIVE: CASE EVENT DATE: 20251201
